FAERS Safety Report 6551030-5 (Version None)
Quarter: 2010Q1

REPORT INFORMATION
  Report Type: 
  Country: None (occurrence: None)
  Receive Date: 20100122
  Receipt Date: 20100122
  Transmission Date: 20100710
  Serious: Yes (Other)
  Sender: FDA-Public Use
  Company Number: None

PATIENT
  Age: 31 Year
  Sex: Female
  Weight: 72.5755 kg

DRUGS (1)
  1. ZICAM NASAL SWAB [Suspect]
     Indication: NASOPHARYNGITIS
     Dosage: 1 5 NASAL
     Route: 045
     Dates: start: 20090814, end: 20090815

REACTIONS (1)
  - ANOSMIA [None]
